FAERS Safety Report 5078313-2 (Version None)
Quarter: 2006Q3

REPORT INFORMATION
  Report Type: 
  Country: None (occurrence: None)
  Receive Date: 20060811
  Receipt Date: 20060619
  Transmission Date: 20061208
  Serious: Yes (Death)
  Sender: FDA-Public Use
  Company Number: FR-BRISTOL-MYERS SQUIBB COMPANY-13423488

PATIENT
  Age: 73 Year
  Sex: Female

DRUGS (4)
  1. ERBITUX [Suspect]
     Indication: COLORECTAL CANCER
     Route: 042
     Dates: start: 20060510, end: 20060517
  2. XELODA [Suspect]
     Route: 048
     Dates: start: 20060510, end: 20060522
  3. AVASTIN [Suspect]
     Route: 042
     Dates: start: 20060510, end: 20060510
  4. OXALIPLATIN [Suspect]
     Route: 042
     Dates: start: 20060510, end: 20060511

REACTIONS (1)
  - PULMONARY EMBOLISM [None]
